FAERS Safety Report 20219923 (Version 2)
Quarter: 2022Q1

REPORT INFORMATION
  Report Type: Spontaneous
  Country: DE (occurrence: DE)
  Receive Date: 20211222
  Receipt Date: 20220120
  Transmission Date: 20220423
  Serious: No
  Sender: FDA-Public Use
  Company Number: DE-JNJFOC-20211223382

PATIENT
  Sex: Female

DRUGS (3)
  1. FENTANYL [Suspect]
     Active Substance: FENTANYL
     Indication: Product used for unknown indication
     Dosage: STRENGTH: 25.00 MCG/HR
     Route: 062
  2. FENTANYL [Suspect]
     Active Substance: FENTANYL
  3. FENTANYL [Suspect]
     Active Substance: FENTANYL

REACTIONS (2)
  - Product adhesion issue [Unknown]
  - Underdose [Unknown]
